FAERS Safety Report 18845697 (Version 1)
Quarter: 2021Q1

REPORT INFORMATION
  Report Type: Report from Study
  Country: US (occurrence: US)
  Receive Date: 20210203
  Receipt Date: 20210203
  Transmission Date: 20210419
  Serious: No
  Sender: FDA-Public Use
  Company Number: US-EXELIXIS-CABO-20030759

PATIENT
  Age: 77 Year
  Sex: Male

DRUGS (2)
  1. CABOMETYX [Suspect]
     Active Substance: CABOZANTINIB S-MALATE
     Indication: RENAL CANCER
     Dosage: 80 MG
     Route: 048
     Dates: start: 202002
  2. CABOMETYX [Suspect]
     Active Substance: CABOZANTINIB S-MALATE
     Dosage: 40 MG, QD
     Route: 048

REACTIONS (9)
  - Blister [Unknown]
  - Urinary tract infection [Unknown]
  - Asthenia [Unknown]
  - Overdose [Unknown]
  - Fall [Unknown]
  - Blood pressure decreased [Unknown]
  - Stomatitis [Unknown]
  - Diarrhoea [Not Recovered/Not Resolved]
  - Decreased appetite [Not Recovered/Not Resolved]

NARRATIVE: CASE EVENT DATE: 202002
